FAERS Safety Report 5319706-5 (Version None)
Quarter: 2007Q2

REPORT INFORMATION
  Report Type: 
  Country: None (occurrence: None)
  Receive Date: 20070503
  Receipt Date: 20070423
  Transmission Date: 20071010
  Serious: Yes (Hospitalization)
  Sender: FDA-Public Use
  Company Number: 100#08#2007-01148

PATIENT
  Age: 15 Year
  Sex: Female

DRUGS (1)
  1. METRONIDAZOLE [Suspect]
     Indication: URINARY TRACT INFECTION

REACTIONS (15)
  - ABASIA [None]
  - AUTONOMIC NEUROPATHY [None]
  - COMPLEX REGIONAL PAIN SYNDROME [None]
  - CSF PROTEIN INCREASED [None]
  - CSF TEST ABNORMAL [None]
  - DIARRHOEA [None]
  - DRUG TOXICITY [None]
  - ERYTHEMA [None]
  - FEELING OF BODY TEMPERATURE CHANGE [None]
  - PAIN [None]
  - PAIN IN EXTREMITY [None]
  - PERIPHERAL SENSORIMOTOR NEUROPATHY [None]
  - PITTING OEDEMA [None]
  - SKIN WARM [None]
  - TYPE III IMMUNE COMPLEX MEDIATED REACTION [None]
